FAERS Safety Report 21756668 (Version 1)
Quarter: 2022Q4

REPORT INFORMATION
  Report Type: Spontaneous
  Country: US (occurrence: None)
  Receive Date: 20221220
  Receipt Date: 20221220
  Transmission Date: 20230113
  Serious: No
  Sender: FDA-Public Use
  Company Number: 2022A407574

PATIENT
  Sex: Female

DRUGS (1)
  1. TUDORZA PRESSAIR [Suspect]
     Active Substance: ACLIDINIUM BROMIDE
     Indication: Chronic obstructive pulmonary disease
     Dosage: 400 MCG, ORAL INHALATION, 1 PUFF 2X DAILY
     Route: 065

REACTIONS (3)
  - Overdose [Unknown]
  - Product residue present [Unknown]
  - Product after taste [Unknown]
